FAERS Safety Report 7456576-3 (Version None)
Quarter: 2011Q2

REPORT INFORMATION
  Report Type: 
  Country: None (occurrence: None)
  Receive Date: 20110503
  Receipt Date: 20110202
  Transmission Date: 20111010
  Serious: Yes (Other)
  Sender: FDA-Public Use
  Company Number: PHHY2011TZ17971

PATIENT
  Sex: Female
  Weight: 2.65 kg

DRUGS (4)
  1. ARTEMETHER,BENFLUMETOL [Suspect]
     Indication: MALARIA
     Dosage: MOTHER'S DOSE: 4 TABS
     Route: 064
     Dates: start: 20090615, end: 20090617
  2. ACETAMINOPHEN [Concomitant]
     Indication: PYREXIA
     Dosage: MOTHER'S DOSE: 2 DF (TWO TABLET DAILY)
     Route: 064
     Dates: start: 20090615, end: 20090617
  3. FERROUS SULFATE TAB [Concomitant]
     Indication: ANAEMIA
     Dosage: MOTHER'S DOSE: 1 DF (ONE TABLET DAILY)
     Route: 064
     Dates: start: 20090615, end: 20090617
  4. DEPO-PROVERA [Concomitant]
     Route: 064

REACTIONS (3)
  - DRUG EXPOSURE DURING PREGNANCY [None]
  - MATERNAL DRUGS AFFECTING FOETUS [None]
  - PREMATURE BABY [None]
